FAERS Safety Report 7428756-4 (Version None)
Quarter: 2011Q2

REPORT INFORMATION
  Report Type: 
  Country: None (occurrence: None)
  Receive Date: 20110421
  Receipt Date: 20110418
  Transmission Date: 20111010
  Serious: Yes (Other)
  Sender: FDA-Public Use
  Company Number: CA-PFIZER INC-2011084515

PATIENT
  Age: 52 Year
  Sex: Female

DRUGS (10)
  1. METFORMIN [Concomitant]
     Dosage: UNK
  2. TRIAMTERENE [Concomitant]
     Dosage: UNK
  3. PERINDOPRIL [Concomitant]
  4. ATORVASTATIN [Concomitant]
     Dosage: UNK
  5. METOCLOPRAMIDE [Concomitant]
     Dosage: UNK
  6. HYDROCHLOROTHIAZIDE [Concomitant]
     Dosage: UNK
  7. CHAMPIX [Suspect]
     Dosage: UNK
  8. PANTOPRAZOLE [Concomitant]
     Dosage: UNK
  9. ACETYLSALICYLIC ACID ENTERIC COATED [Concomitant]
     Dosage: UNK
  10. NIFEDIPINE [Concomitant]
     Dosage: UNK

REACTIONS (1)
  - HYPERGLYCAEMIA [None]
